FAERS Safety Report 14906838 (Version 1)
Quarter: 2018Q2

REPORT INFORMATION
  Report Type: Spontaneous
  Country: US (occurrence: US)
  Receive Date: 20180517
  Receipt Date: 20180517
  Transmission Date: 20180711
  Serious: Yes (Hospitalization)
  Sender: FDA-Public Use
  Company Number: US-ROCHE-2122516

PATIENT
  Age: 47 Year
  Sex: Female

DRUGS (1)
  1. OCREVUS [Suspect]
     Active Substance: OCRELIZUMAB
     Indication: MULTIPLE SCLEROSIS
     Route: 042
     Dates: start: 201708

REACTIONS (3)
  - Pyrexia [Unknown]
  - Pneumonia [Recovering/Resolving]
  - Cough [Not Recovered/Not Resolved]

NARRATIVE: CASE EVENT DATE: 20180418
